FAERS Safety Report 23159809 (Version 5)
Quarter: 2024Q1

REPORT INFORMATION
  Report Type: Spontaneous
  Country: BR (occurrence: BR)
  Receive Date: 20231108
  Receipt Date: 20240305
  Transmission Date: 20240410
  Serious: Yes (Death, Life-Threatening, Hospitalization, Other)
  Sender: FDA-Public Use
  Company Number: BR-002147023-NVSC2023BR235181

PATIENT

DRUGS (5)
  1. RUXOLITINIB [Suspect]
     Active Substance: RUXOLITINIB
     Indication: Myelofibrosis
     Dosage: 2 DOSAGE FORM, QD (60 TABLETS)
     Route: 065
     Dates: start: 20180601
  2. RUXOLITINIB [Suspect]
     Active Substance: RUXOLITINIB
     Dosage: 1 DOSAGE FORM
     Route: 065
  3. PREGABALIN [Concomitant]
     Active Substance: PREGABALIN
     Indication: Pain
     Dosage: 1 DOSAGE FORM, QD
     Route: 065
  4. EPREX [Concomitant]
     Active Substance: ERYTHROPOIETIN
     Indication: Haemoglobin abnormal
     Dosage: 1 DOSAGE FORM, QW (USUALLY ON WEDNESDAY) ^STRENGTH 40000 UI^
     Route: 065
  5. EUTHYROX [Concomitant]
     Active Substance: LEVOTHYROXINE SODIUM
     Indication: Thyroid disorder
     Dosage: 1 DOSAGE FORM, QD
     Route: 065

REACTIONS (7)
  - Diabetic metabolic decompensation [Fatal]
  - Product distribution issue [Unknown]
  - Oxygen saturation decreased [Fatal]
  - Myelofibrosis [Fatal]
  - Coma [Fatal]
  - Fatigue [Fatal]
  - Multiple organ dysfunction syndrome [Fatal]

NARRATIVE: CASE EVENT DATE: 20230101
